FAERS Safety Report 8949949 (Version 1)
Quarter: 2012Q4

REPORT INFORMATION
  Report Type: 
  Country: US (occurrence: US)
  Receive Date: 20121205
  Receipt Date: 20121205
  Transmission Date: 20130627
  Serious: Yes (Other)
  Sender: FDA-Public Use
  Company Number: US-GILEAD-2012-0061825

PATIENT
  Sex: Female

DRUGS (5)
  1. LETAIRIS [Suspect]
     Indication: PULMONARY ARTERIAL HYPERTENSION
     Dosage: 5 mg, QD
     Route: 048
     Dates: start: 20120120, end: 20120910
  2. LETAIRIS [Suspect]
     Indication: PULMONARY ARTERIAL HYPERTENSION
  3. SERTRALINE [Concomitant]
  4. FAMOTIDINE [Concomitant]
  5. ATACAND [Concomitant]

REACTIONS (6)
  - Hepatic cirrhosis [Unknown]
  - Jaundice [Unknown]
  - Blood bilirubin increased [Unknown]
  - Abdominal pain upper [Unknown]
  - Vomiting [Unknown]
  - Nausea [Unknown]
